FAERS Safety Report 8234153-4 (Version None)
Quarter: 2012Q1

REPORT INFORMATION
  Report Type: 
  Country: None (occurrence: None)
  Receive Date: 20120326
  Receipt Date: 20120319
  Transmission Date: 20120608
  Serious: Yes (Hospitalization)
  Sender: FDA-Public Use
  Company Number: IT-SANOFI-AVENTIS-2012SA011800

PATIENT
  Age: 90 Year
  Sex: Female

DRUGS (5)
  1. ENALAPRIL MALEATE [Suspect]
     Route: 048
     Dates: start: 20110101
  2. ATENOLOL [Suspect]
     Route: 048
     Dates: start: 20110101, end: 20120123
  3. LANOXIN [Suspect]
     Route: 048
     Dates: start: 20110101, end: 20120123
  4. LASIX [Suspect]
     Route: 048
     Dates: start: 20110101
  5. ASPIRIN [Concomitant]
     Route: 048

REACTIONS (2)
  - DRUG INTERACTION [None]
  - BRADYCARDIA [None]
